FAERS Safety Report 7331172-7 (Version None)
Quarter: 2011Q1

REPORT INFORMATION
  Report Type: 
  Country: None (occurrence: None)
  Receive Date: 20110228
  Receipt Date: 20110228
  Transmission Date: 20110831
  Serious: Yes (Hospitalization, Disabling)
  Sender: FDA-Public Use
  Company Number: None

PATIENT
  Sex: Female
  Weight: 61.2356 kg

DRUGS (1)
  1. CIPROFLOXACIN CR 500 COBALT - MFG [Suspect]
     Indication: CYSTITIS
     Dosage: 2 DOSE     10 DAYS

REACTIONS (4)
  - MUSCULAR WEAKNESS [None]
  - ARTHRALGIA [None]
  - OEDEMA PERIPHERAL [None]
  - DRUG INEFFECTIVE [None]
